FAERS Safety Report 10684463 (Version 2)
Quarter: 2015Q1

REPORT INFORMATION
  Report Type: Report from Study
  Country: US (occurrence: US)
  Receive Date: 20141231
  Receipt Date: 20150303
  Transmission Date: 20150720
  Serious: Yes (Other)
  Sender: FDA-Public Use
  Company Number: PHEH2014US025750

PATIENT
  Sex: Male

DRUGS (1)
  1. MYFORTIC [Suspect]
     Active Substance: MYCOPHENOLATE SODIUM
     Indication: PANCREAS TRANSPLANT
     Dosage: 720 MG, BID
     Route: 048

REACTIONS (4)
  - Blood pressure systolic increased [Unknown]
  - Chronic kidney disease [Unknown]
  - Product use issue [Unknown]
  - Dizziness [Unknown]
